FAERS Safety Report 4710179-X (Version None)
Quarter: 2005Q3

REPORT INFORMATION
  Report Type: 
  Country: None (occurrence: None)
  Receive Date: 20050707
  Receipt Date: 20050707
  Transmission Date: 20060218
  Serious: Yes (Other)
  Sender: FDA-Public Use
  Company Number: None

PATIENT
  Age: 18 Year
  Sex: Male
  Weight: 70 kg

DRUGS (3)
  1. NATURE'S BOUNTY PROBIOTIC ACIDOPHILUS [Suspect]
     Indication: CLOSTRIDIAL INFECTION
     Dosage: 2 CAPS TID
     Dates: start: 20050627, end: 20050628
  2. NATURE'S BOUNTY PROBIOTIC ACIDOPHILUS [Suspect]
     Indication: PROPHYLAXIS
     Dosage: 2 CAPS TID
     Dates: start: 20050627, end: 20050628
  3. LEVAQUIN [Concomitant]

REACTIONS (1)
  - URTICARIA [None]
